FAERS Safety Report 4457343-5 (Version None)
Quarter: 2004Q3

REPORT INFORMATION
  Report Type: 
  Country: None (occurrence: None)
  Receive Date: 20040922
  Receipt Date: 20040915
  Transmission Date: 20050211
  Serious: Yes (Other)
  Sender: FDA-Public Use
  Company Number: 01/07502-USE

PATIENT
  Age: 35 Year
  Sex: Female
  Weight: 66.7 kg

DRUGS (1)
  1. BETAPACE [Suspect]
     Indication: VENTRICULAR EXTRASYSTOLES
     Dosage: 120 MG, 2X/DAY, ORAL
     Route: 048
     Dates: start: 20010101, end: 20011201

REACTIONS (2)
  - ABORTION SPONTANEOUS [None]
  - DRUG EXPOSURE DURING PREGNANCY [None]
